FAERS Safety Report 4839944-5 (Version None)
Quarter: 2005Q4

REPORT INFORMATION
  Report Type: 
  Country: None (occurrence: None)
  Receive Date: 20051125
  Receipt Date: 20051111
  Transmission Date: 20060501
  Serious: Yes (Hospitalization)
  Sender: FDA-Public Use
  Company Number: 430014E05GBR

PATIENT
  Age: 66 Year
  Sex: Female

DRUGS (13)
  1. NOVANTRONE [Suspect]
     Dosage: 22 MG, 1 IN 1 DAYS, INTRAVENOUS (NOT OTHERWISE SPECIFIED)
     Route: 042
     Dates: start: 20050927, end: 20050927
  2. NOVANTRONE [Suspect]
     Dosage: 22 MG, 1 IN 1 DAYS, INTRAVENOUS (NOT OTHERWISE SPECIFIED)
     Route: 042
     Dates: start: 20051026, end: 20051026
  3. FLUDARABINE [Concomitant]
  4. PARACETAMOL [Concomitant]
  5. ALLOPURINOL [Concomitant]
  6. OMEPRAZOLE [Concomitant]
  7. BARANO [Concomitant]
  8. CHLORHEXIDINE [Concomitant]
  9. BENZYDAMINE [Concomitant]
  10. DEXAMETHASONE [Concomitant]
  11. MORPHINE [Concomitant]
  12. GRANISETRON [Concomitant]
  13. METOCLOPRAMIDE [Concomitant]

REACTIONS (3)
  - DEEP VEIN THROMBOSIS [None]
  - PLEURAL EFFUSION [None]
  - PULMONARY EMBOLISM [None]
